FAERS Safety Report 14846613 (Version 3)
Quarter: 2018Q3

REPORT INFORMATION
  Report Type: Report from Study
  Country: ES (occurrence: ES)
  Receive Date: 20180504
  Receipt Date: 20180816
  Transmission Date: 20181010
  Serious: Yes (Hospitalization)
  Sender: FDA-Public Use
  Company Number: ES-TEVA-2018-ES-886834

PATIENT
  Age: 55 Year
  Sex: Female

DRUGS (3)
  1. IVABRADINE [Interacting]
     Active Substance: IVABRADINE
     Indication: OFF LABEL USE
  2. IVABRADINE [Interacting]
     Active Substance: IVABRADINE
     Indication: MYOCARDIAL ISCHAEMIA
     Route: 048
     Dates: start: 2013, end: 20131021
  3. BISOPROLOL [Suspect]
     Active Substance: BISOPROLOL
     Indication: MYOCARDIAL ISCHAEMIA
     Route: 048
     Dates: start: 2013, end: 20131021

REACTIONS (5)
  - Sinus bradycardia [Recovered/Resolved]
  - Drug interaction [Unknown]
  - Asthenia [Recovered/Resolved]
  - Chest pain [Recovered/Resolved]
  - Dizziness [Recovered/Resolved]

NARRATIVE: CASE EVENT DATE: 20131021
